FAERS Safety Report 23636685 (Version 3)
Quarter: 2024Q2

REPORT INFORMATION
  Report Type: Report from Study
  Country: IT (occurrence: IT)
  Receive Date: 20240315
  Receipt Date: 20240426
  Transmission Date: 20240716
  Serious: No
  Sender: FDA-Public Use
  Company Number: IT-JNJFOC-20240328137

PATIENT
  Age: 18 Year
  Sex: Female

DRUGS (2)
  1. SPRAVATO [Suspect]
     Active Substance: ESKETAMINE
     Indication: Depression
     Dosage: 56 MG (2 DEVICES)?RECEIVED DOSE ON 24-NOV-2023
     Dates: start: 20231121, end: 20231128
  2. SPRAVATO [Suspect]
     Active Substance: ESKETAMINE
     Dosage: 84 MG (3 DEVICES)?RECEIVED DOSES ON 05-DEC-2023, 12-DEC-2023, 15-DEC-2023, 19-DEC-2023, 29-DEC-2023,
     Dates: start: 20231201, end: 20240206

REACTIONS (1)
  - Rehabilitation therapy [Recovering/Resolving]

NARRATIVE: CASE EVENT DATE: 20240304
